FAERS Safety Report 21033562 (Version 2)
Quarter: 2022Q3

REPORT INFORMATION
  Report Type: Spontaneous
  Country: JP (occurrence: JP)
  Receive Date: 20220701
  Receipt Date: 20220711
  Transmission Date: 20221027
  Serious: Yes (Death, Other)
  Sender: FDA-Public Use
  Company Number: JP-OTSUKA-2022_034329

PATIENT
  Age: 91 Year
  Sex: Female

DRUGS (21)
  1. TOLVAPTAN [Suspect]
     Active Substance: TOLVAPTAN
     Indication: Cardiac failure
     Dosage: 16 MG/DAY (8 MGX2), 2V, REGULAR/FLUID REPLACEMENT (AT 6:00, OVER A 1-HOUR PERIOD)
     Route: 041
     Dates: start: 20220611, end: 20220616
  2. TOLVAPTAN [Suspect]
     Active Substance: TOLVAPTAN
     Indication: Fluid retention
     Dosage: A DOSE OF 8 MG, UNK
     Route: 065
     Dates: start: 20220607
  3. LASIX [Concomitant]
     Active Substance: FUROSEMIDE
     Indication: Product used for unknown indication
     Dosage: 40 MG (2A/TIME) (I.V) X 3 (AT 6:00, 14:00, AND 22:00)
     Route: 041
     Dates: start: 20220609, end: 20220612
  4. CARPERITIDE [Concomitant]
     Active Substance: CARPERITIDE
     Indication: Product used for unknown indication
     Dosage: 2V
     Route: 065
     Dates: start: 20220610, end: 20220612
  5. VITAJECT [VITAMINS NOS] [Concomitant]
     Indication: Product used for unknown indication
     Dosage: 1K
     Route: 065
     Dates: start: 20220610, end: 20220611
  6. VITAJECT [VITAMINS NOS] [Concomitant]
     Dosage: 1K
     Route: 065
     Dates: start: 20220613, end: 20220613
  7. FAMOTIDINE [Concomitant]
     Active Substance: FAMOTIDINE
     Indication: Product used for unknown indication
     Dosage: 20MG
     Route: 065
     Dates: start: 20220610, end: 20220611
  8. FAMOTIDINE [Concomitant]
     Active Substance: FAMOTIDINE
     Dosage: 20MG
     Route: 065
     Dates: start: 20220613, end: 20220613
  9. PANTOL [PANTHENOL] [Concomitant]
     Indication: Product used for unknown indication
     Dosage: 4A
     Route: 065
     Dates: start: 20220610, end: 20220611
  10. PANTOL [PANTHENOL] [Concomitant]
     Dosage: 4A
     Route: 065
     Dates: start: 20220613, end: 20220613
  11. HEPARIN [Concomitant]
     Active Substance: HEPARIN SODIUM
     Indication: Product used for unknown indication
     Dosage: 5ML
     Route: 065
  12. POTASSIUM ASPARTATE [Concomitant]
     Active Substance: POTASSIUM ASPARTATE
     Indication: Product used for unknown indication
     Dosage: 20 ML
     Route: 065
     Dates: start: 20220610, end: 20220610
  13. POTASSIUM ASPARTATE [Concomitant]
     Active Substance: POTASSIUM ASPARTATE
     Dosage: 20 ML (CV PORT, MIXED)
     Route: 065
     Dates: start: 20220611, end: 20220611
  14. POTASSIUM ASPARTATE [Concomitant]
     Active Substance: POTASSIUM ASPARTATE
     Dosage: 20ML
     Route: 065
     Dates: start: 20220613, end: 20220613
  15. ALBUMIN HUMAN [Concomitant]
     Active Substance: ALBUMIN HUMAN
     Indication: Product used for unknown indication
     Dosage: 50ML
     Route: 065
  16. PIPERACILLIN SODIUM\TAZOBACTAM SODIUM [Concomitant]
     Active Substance: PIPERACILLIN SODIUM\TAZOBACTAM SODIUM
     Indication: Product used for unknown indication
     Dosage: 4.5 G, 1V
     Route: 065
     Dates: start: 20220611, end: 20220611
  17. SODIUM CHLORIDE [Concomitant]
     Active Substance: SODIUM CHLORIDE
     Indication: Product used for unknown indication
     Dosage: 50ML
     Route: 065
     Dates: start: 20220608, end: 20220610
  18. SODIUM CHLORIDE [Concomitant]
     Active Substance: SODIUM CHLORIDE
     Dosage: 1 KIT (DIV) X 3 (AT 6:00, 14:00, AND 22:00)
     Route: 065
     Dates: start: 20220611, end: 20220611
  19. SODIUM CHLORIDE [Concomitant]
     Active Substance: SODIUM CHLORIDE
     Dosage: 50ML
     Route: 065
     Dates: start: 20220612, end: 20220612
  20. DEXTROSE [Concomitant]
     Active Substance: DEXTROSE
     Indication: Product used for unknown indication
     Dosage: 50 ML (CONTINUOUS INFUSION) X1
     Route: 065
     Dates: start: 20220610, end: 20220612
  21. DOPAMINE [DOPAMINE HYDROCHLORIDE] [Concomitant]
     Indication: Product used for unknown indication
     Dosage: 200 ML 1 BAG (CONTINUOUS INFUSION)
     Route: 065
     Dates: start: 20220611, end: 20220611

REACTIONS (1)
  - Multiple organ dysfunction syndrome [Fatal]

NARRATIVE: CASE EVENT DATE: 20220617
